FAERS Safety Report 7550346-3 (Version None)
Quarter: 2011Q2

REPORT INFORMATION
  Report Type: 
  Country: None (occurrence: None)
  Receive Date: 20110615
  Receipt Date: 20110319
  Transmission Date: 20111010
  Serious: No
  Sender: FDA-Public Use
  Company Number: A0919673A

PATIENT
  Sex: Male

DRUGS (1)
  1. PARNATE [Suspect]
     Dosage: 30MG THREE TIMES PER DAY

REACTIONS (1)
  - ERECTILE DYSFUNCTION [None]
